FAERS Safety Report 5237125-7 (Version None)
Quarter: 2007Q1

REPORT INFORMATION
  Report Type: 
  Country: None (occurrence: None)
  Receive Date: 20070213
  Receipt Date: 20070209
  Transmission Date: 20070707
  Serious: Yes (Other)
  Sender: FDA-Public Use
  Company Number: US-GLAXOSMITHKLINE-A0635343A

PATIENT
  Age: 80 Year
  Sex: Female
  Weight: 60.5 kg

DRUGS (2)
  1. AVANDIA [Suspect]
     Indication: DIABETES MELLITUS NON-INSULIN-DEPENDENT
     Route: 048
  2. MULTIPLE MEDICATIONS [Concomitant]

REACTIONS (9)
  - ANAEMIA [None]
  - HAEMATOCRIT DECREASED [None]
  - LYMPHOCYTE COUNT DECREASED [None]
  - OEDEMA [None]
  - PANCYTOPENIA [None]
  - PLATELET COUNT DECREASED [None]
  - RECTAL HAEMORRHAGE [None]
  - RED BLOOD CELL COUNT DECREASED [None]
  - WHITE BLOOD CELL COUNT DECREASED [None]
